FAERS Safety Report 16117958 (Version 1)
Quarter: 2019Q1

REPORT INFORMATION
  Report Type: Spontaneous
  Country: US (occurrence: US)
  Receive Date: 20190326
  Receipt Date: 20190326
  Transmission Date: 20190418
  Serious: No
  Sender: FDA-Public Use
  Company Number: US-ASTRAZENECA-2019SE34710

PATIENT
  Age: 29229 Day
  Sex: Female
  Weight: 58.5 kg

DRUGS (1)
  1. SYMBICORT [Suspect]
     Active Substance: BUDESONIDE\FORMOTEROL FUMARATE DIHYDRATE
     Indication: ASTHMA
     Dosage: 80/4.5 MCG, TWO PUFFS IN THE AM AND PM, TWO TIMES A DAY
     Route: 055
     Dates: start: 20190218

REACTIONS (6)
  - Respiratory rate increased [Recovering/Resolving]
  - Throat irritation [Unknown]
  - Sinus disorder [Unknown]
  - Myasthenia gravis [Unknown]
  - Intentional product misuse [Unknown]
  - Fatigue [Recovering/Resolving]

NARRATIVE: CASE EVENT DATE: 20190218
